FAERS Safety Report 19178345 (Version 1)
Quarter: 2021Q2

REPORT INFORMATION
  Report Type: Spontaneous
  Country: US (occurrence: US)
  Receive Date: 20210426
  Receipt Date: 20210426
  Transmission Date: 20210717
  Serious: Yes (Hospitalization, Other)
  Sender: FDA-Public Use
  Company Number: US-CIPLA LTD.-2021US03014

PATIENT

DRUGS (1)
  1. GABAPENTIN. [Suspect]
     Active Substance: GABAPENTIN
     Indication: BACK PAIN
     Dosage: 36 GRAM, QD (TAKING AS MUCH AS 36 GRAMS A DAY)
     Route: 065

REACTIONS (9)
  - Drug abuse [Recovered/Resolved]
  - Pyrexia [Unknown]
  - Asthenia [Unknown]
  - Incorrect dose administered [Recovered/Resolved]
  - Drug dependence [Recovered/Resolved]
  - Myalgia [Unknown]
  - Drug withdrawal convulsions [Unknown]
  - Drug withdrawal syndrome [Unknown]
  - Drug use disorder [Unknown]
